FAERS Safety Report 16312193 (Version 1)
Quarter: 2019Q2

REPORT INFORMATION
  Report Type: Spontaneous
  Country: JP (occurrence: JP)
  Receive Date: 20190515
  Receipt Date: 20190515
  Transmission Date: 20190711
  Serious: Yes (Life-Threatening, Hospitalization)
  Sender: FDA-Public Use
  Company Number: JP-BRISTOL-MYERS SQUIBB COMPANY-BMS-2018-118607

PATIENT
  Age: 82 Year
  Sex: Male
  Weight: 44 kg

DRUGS (10)
  1. OPDIVO [Suspect]
     Active Substance: NIVOLUMAB
     Indication: NON-SMALL CELL LUNG CANCER RECURRENT
     Dosage: 240 MG
     Route: 041
     Dates: start: 20181128
  2. KALIMATE [Suspect]
     Active Substance: CALCIUM POLYSTYRENE SULFONATE
     Indication: HYPERKALAEMIA
     Dosage: UNK UNK, Q8H
     Route: 065
  3. ALPRAZOLAM. [Concomitant]
     Active Substance: ALPRAZOLAM
     Indication: INSOMNIA
     Dosage: 0.4 MILLIGRAM
     Route: 065
  4. SENNOSIDE A [Concomitant]
     Active Substance: SENNOSIDE A
     Indication: CONSTIPATION
     Dosage: 12 MILLIGRAM
     Route: 065
  5. MUCOSOLVAN L [Concomitant]
     Active Substance: AMBROXOL HYDROCHLORIDE
     Indication: CHRONIC OBSTRUCTIVE PULMONARY DISEASE
     Dosage: 45 MILLIGRAM
     Route: 065
  6. TULOBUTEROL EMEC [Concomitant]
     Indication: CHRONIC OBSTRUCTIVE PULMONARY DISEASE
     Dosage: 1 MILLIGRAM
     Route: 065
  7. MAGNESIUM OXIDE. [Concomitant]
     Active Substance: MAGNESIUM OXIDE
     Indication: CONSTIPATION
     Dosage: 330 MILLIGRAM
     Route: 065
  8. DESALEX [Concomitant]
     Active Substance: DESLORATADINE
     Indication: URTICARIA
     Dosage: 5 MILLIGRAM
     Route: 065
     Dates: start: 20181206
  9. PARIET [Concomitant]
     Active Substance: RABEPRAZOLE SODIUM
     Indication: GASTROOESOPHAGEAL REFLUX DISEASE
     Dosage: 10 MILLIGRAM
     Route: 065
  10. HUSCODE [Concomitant]
     Active Substance: CHLORPHENIRAMINE MALEATE\DIHYDROCODEINE PHOSPHATE\METHYLEPHEDRINE HYDROCHLORIDE, DL-
     Indication: CHRONIC OBSTRUCTIVE PULMONARY DISEASE
     Dosage: 10 MILLILITER
     Route: 065

REACTIONS (1)
  - Hepatic function abnormal [Recovered/Resolved]

NARRATIVE: CASE EVENT DATE: 20181206
